FAERS Safety Report 18879884 (Version 1)
Quarter: 2021Q1

REPORT INFORMATION
  Report Type: Spontaneous
  Country: US (occurrence: US)
  Receive Date: 20210211
  Receipt Date: 20210211
  Transmission Date: 20210420
  Serious: Yes (Other)
  Sender: FDA-Public Use
  Company Number: US-JAZZ-JPI-P-019267

PATIENT
  Age: 58 Year
  Sex: Female
  Weight: 120.91 kg

DRUGS (14)
  1. XYREM [Suspect]
     Active Substance: SODIUM OXYBATE
     Dosage: 4.5 GRAM, BID
     Route: 048
     Dates: start: 20070509
  2. SYNTHROID [Concomitant]
     Active Substance: LEVOTHYROXINE SODIUM
  3. ALLEGRA D (FEXOFENADINE HYDROCHLORIDE) [Concomitant]
  4. XYREM [Suspect]
     Active Substance: SODIUM OXYBATE
     Indication: NARCOLEPSY
     Route: 048
     Dates: start: 20050927
  5. SIMVASTATIN. [Concomitant]
     Active Substance: SIMVASTATIN
  6. LUXIQ (BETAMETHASONE VALERATE) [Concomitant]
  7. FLONASE [Concomitant]
     Active Substance: FLUTICASONE PROPIONATE
  8. PREVACID [Concomitant]
     Active Substance: LANSOPRAZOLE
  9. COUMADIN [Concomitant]
     Active Substance: WARFARIN SODIUM
  10. XYREM [Suspect]
     Active Substance: SODIUM OXYBATE
     Indication: CATAPLEXY
     Dosage: UNKNOWN DOSE, QD
     Route: 048
     Dates: end: 20070508
  11. PROVIGIL [Concomitant]
     Active Substance: MODAFINIL
  12. DIPROLENE (BETAMETHASONE DIPROPIONATE) [Concomitant]
  13. PHENERGAN [Concomitant]
     Active Substance: PROMETHAZINE HYDROCHLORIDE
  14. POTASSIUM CHLORIDE. [Concomitant]
     Active Substance: POTASSIUM CHLORIDE

REACTIONS (4)
  - Thyroid operation [Unknown]
  - Thyroid cyst [Recovered/Resolved]
  - Parathyroid disorder [Unknown]
  - Fatigue [Not Recovered/Not Resolved]

NARRATIVE: CASE EVENT DATE: 2011
